FAERS Safety Report 4681879-5 (Version None)
Quarter: 2005Q2

REPORT INFORMATION
  Report Type: 
  Country: None (occurrence: None)
  Receive Date: 20050602
  Receipt Date: 20050513
  Transmission Date: 20051028
  Serious: Yes (Death)
  Sender: FDA-Public Use
  Company Number: US_0505116923

PATIENT
  Age: 70 Year
  Sex: Female

DRUGS (4)
  1. ZYPREXA [Suspect]
     Indication: MENTAL DISORDER DUE TO A GENERAL MEDICAL CONDITION
     Dosage: 10 MG/2 DAY
     Dates: start: 20050425, end: 20050426
  2. VALCOTE (VALPROIC ACID) [Concomitant]
  3. CLONAZEPAM [Concomitant]
  4. VITAMIN B COMPLEX CAP [Concomitant]

REACTIONS (13)
  - AGGRESSION [None]
  - CARDIO-RESPIRATORY ARREST [None]
  - CONVULSION [None]
  - DELIRIUM [None]
  - ELECTROLYTE IMBALANCE [None]
  - HALLUCINATION [None]
  - HYPONATRAEMIA [None]
  - INSOMNIA [None]
  - MOTOR DYSFUNCTION [None]
  - MUSCLE CONTRACTURE [None]
  - POSTURE ABNORMAL [None]
  - SOMNOLENCE [None]
  - VIRAL DIARRHOEA [None]
